FAERS Safety Report 6370095-7 (Version None)
Quarter: 2009Q3

REPORT INFORMATION
  Report Type: 
  Country: None (occurrence: None)
  Receive Date: 20090923
  Receipt Date: 20070712
  Transmission Date: 20100115
  Serious: Yes (Other)
  Sender: FDA-Public Use
  Company Number: US-ASTRAZENECA-2006UW21303

PATIENT
  Age: 16302 Day
  Sex: Female
  Weight: 100.7 kg

DRUGS (16)
  1. SEROQUEL [Suspect]
     Indication: MENTAL DISORDER
     Route: 048
     Dates: start: 20011101
  2. ABILIFY [Concomitant]
     Dates: start: 20000101
  3. CLOZARIL [Concomitant]
     Dates: start: 20020101
  4. NAVANE [Concomitant]
     Dates: start: 20000101
  5. RISPERDAL [Concomitant]
     Dates: start: 20020101
  6. REQUIP [Concomitant]
  7. MONOPRIL [Concomitant]
  8. MEVACOR [Concomitant]
  9. AVANDAMET [Concomitant]
  10. BENADRYL [Concomitant]
  11. ADIPEX [Concomitant]
  12. COGENTIN [Concomitant]
  13. LISINOPRIL [Concomitant]
  14. CRESTOR [Concomitant]
  15. DARVOCET-N 100 [Concomitant]
  16. GLUCOVANCE [Concomitant]

REACTIONS (2)
  - DIABETES MELLITUS [None]
  - DIABETIC COMA [None]
